FAERS Safety Report 17445472 (Version 3)
Quarter: 2020Q4

REPORT INFORMATION
  Report Type: Report from Study
  Country: US (occurrence: US)
  Receive Date: 20200221
  Receipt Date: 20201109
  Transmission Date: 20210113
  Serious: Yes (Other)
  Sender: FDA-Public Use
  Company Number: NVSC2020US043197

PATIENT
  Age: 67 Year
  Sex: Male

DRUGS (1)
  1. ENTRESTO [Suspect]
     Active Substance: SACUBITRIL\VALSARTAN
     Indication: CARDIAC FAILURE CHRONIC
     Dosage: 200 MG (97/103 MG), UNKNOWN
     Route: 065
     Dates: start: 2018

REACTIONS (9)
  - Cardiac dysfunction [Not Recovered/Not Resolved]
  - Confusional state [Not Recovered/Not Resolved]
  - Renal impairment [Unknown]
  - Pollakiuria [Unknown]
  - Hypotension [Unknown]
  - Weight increased [Unknown]
  - Malaise [Unknown]
  - Blood pressure abnormal [Unknown]
  - Cough [Unknown]

NARRATIVE: CASE EVENT DATE: 201902
